FAERS Safety Report 21919968 (Version 1)
Quarter: 2023Q1

REPORT INFORMATION
  Report Type: Report from Study
  Country: US (occurrence: US)
  Receive Date: 20230127
  Receipt Date: 20230127
  Transmission Date: 20230417
  Serious: Yes (Other)
  Sender: FDA-Public Use
  Company Number: US-TEVA-2023-US-2849548

PATIENT
  Sex: Male

DRUGS (2)
  1. CLARAVIS [Suspect]
     Active Substance: ISOTRETINOIN
     Indication: Product used for unknown indication
     Dosage: 40 MILLIGRAM
     Route: 065
  2. CLARAVIS [Suspect]
     Active Substance: ISOTRETINOIN
     Dosage: 20 MILLIGRAM
     Route: 065

REACTIONS (2)
  - Anger [Unknown]
  - Aggression [Unknown]
